FAERS Safety Report 6930143-X (Version None)
Quarter: 2010Q3

REPORT INFORMATION
  Report Type: 
  Country: None (occurrence: None)
  Receive Date: 20100818
  Receipt Date: 20100812
  Transmission Date: 20110219
  Serious: Yes (Other)
  Sender: FDA-Public Use
  Company Number: GB-BRISTOL-MYERS SQUIBB COMPANY-15238777

PATIENT
  Sex: Female

DRUGS (1)
  1. SPRYCEL [Suspect]

REACTIONS (2)
  - OVARIAN CANCER [None]
  - PLEURAL EFFUSION [None]
